FAERS Safety Report 8925077 (Version 1)
Quarter: 2012Q4

REPORT INFORMATION
  Report Type: Spontaneous
  Country: US (occurrence: None)
  Receive Date: 20121126
  Receipt Date: 20121126
  Transmission Date: 20130627
  Serious: No
  Sender: FDA-Public Use
  Company Number: None

PATIENT
  Age: 91 Year
  Sex: Female
  Weight: 72.58 kg

DRUGS (1)
  1. COLCRYS [Suspect]
     Indication: GOUT
     Dosage: 0.6 mg twice a day
     Dates: start: 20121116, end: 20121118

REACTIONS (4)
  - Nausea [None]
  - Vomiting [None]
  - Frequent bowel movements [None]
  - Diarrhoea [None]
